FAERS Safety Report 25918776 (Version 3)
Quarter: 2025Q4

REPORT INFORMATION
  Report Type: Spontaneous
  Country: US (occurrence: US)
  Receive Date: 20251014
  Receipt Date: 20251024
  Transmission Date: 20260117
  Serious: Yes (Hospitalization, Other)
  Sender: ADVANZ PHARMA
  Company Number: US-MLMSERVICE-20250925-PI658027-00306-1

PATIENT

DRUGS (12)
  1. HYDROXYCHLOROQUINE [Suspect]
     Active Substance: HYDROXYCHLOROQUINE
     Indication: Rheumatoid arthritis
     Dosage: 200 MG, QD
     Route: 065
  2. PREDNISONE [Suspect]
     Active Substance: PREDNISONE
     Indication: Pulmonary fibrosis
     Dosage: 5 MG, QD
     Route: 065
  3. PREDNISONE [Suspect]
     Active Substance: PREDNISONE
     Indication: Immunosuppressant drug therapy
     Dosage: 10 MG, QD
     Route: 048
  4. PREDNISONE [Suspect]
     Active Substance: PREDNISONE
     Indication: Odynophagia
     Dosage: 40 MG, QD
     Route: 048
  5. PREDNISONE [Suspect]
     Active Substance: PREDNISONE
     Indication: Oesophageal ulcer
     Dosage: UNK (TAPERED BY 10 MG EVERY 3 DAYS UNTIL BACK TO HER MAINTENANCE DOSE OF 5 MG)
     Route: 048
  6. PREDNISONE [Suspect]
     Active Substance: PREDNISONE
     Indication: Lung transplant
     Dosage: HIGH DOSE
     Route: 048
  7. TACROLIMUS [Suspect]
     Active Substance: TACROLIMUS
     Indication: Immunosuppressant drug therapy
     Dosage: UNK (TARGET TROUGH 6-8 NG/ML, TACROLIMUS GOAL WAS INCREASED (TARGET TROUGH 8-10)
     Route: 065
  8. TACROLIMUS [Suspect]
     Active Substance: TACROLIMUS
     Indication: Lung transplant
  9. TACROLIMUS [Suspect]
     Active Substance: TACROLIMUS
     Indication: Pulmonary fibrosis
  10. BELATACEPT [Suspect]
     Active Substance: BELATACEPT
     Indication: Immunosuppressant drug therapy
     Dosage: UNK UNK, QM
     Route: 042
  11. BELATACEPT [Suspect]
     Active Substance: BELATACEPT
     Indication: Lung transplant
  12. BELATACEPT [Suspect]
     Active Substance: BELATACEPT
     Indication: Pulmonary fibrosis

REACTIONS (12)
  - Oesophageal stenosis [Not Recovered/Not Resolved]
  - Oesophageal ulcer [Recovering/Resolving]
  - Oesophageal candidiasis [Recovering/Resolving]
  - Oral candidiasis [Recovered/Resolved]
  - Odynophagia [Recovering/Resolving]
  - Oropharyngeal plaque [Recovering/Resolving]
  - Oesophagitis [Recovering/Resolving]
  - Dysphagia [Recovered/Resolved]
  - Hypogammaglobulinaemia [Recovering/Resolving]
  - Immune system disorder [Unknown]
  - Abdominal pain upper [Recovering/Resolving]
  - Leukopenia [Recovering/Resolving]
